FAERS Safety Report 4665317-4 (Version None)
Quarter: 2005Q2

REPORT INFORMATION
  Report Type: 
  Country: None (occurrence: None)
  Receive Date: 20050517
  Receipt Date: 20050506
  Transmission Date: 20051028
  Serious: Yes (Other)
  Sender: FDA-Public Use
  Company Number: 2005072312

PATIENT
  Age: 63 Year
  Sex: Male
  Weight: 88.4514 kg

DRUGS (5)
  1. LIPITOR [Suspect]
     Indication: BLOOD CHOLESTEROL INCREASED
     Dosage: 10 MG (10 MG, 1 IN 1 D), ORAL
     Route: 048
     Dates: start: 20050101
  2. PIOGLITAZONE HCL [Concomitant]
  3. RAMIPRIL [Concomitant]
  4. NICOTINIC ACID [Concomitant]
  5. FOLIC ACID [Concomitant]

REACTIONS (1)
  - RENAL IMPAIRMENT [None]
